FAERS Safety Report 23440242 (Version 1)
Quarter: 2024Q1

REPORT INFORMATION
  Report Type: Report from Study
  Country: ZA (occurrence: ZA)
  Receive Date: 20240124
  Receipt Date: 20240124
  Transmission Date: 20240410
  Serious: Yes (Other)
  Sender: FDA-Public Use
  Company Number: ZA-ABBVIE-5595803

PATIENT
  Age: 48 Year
  Sex: Male

DRUGS (1)
  1. OZURDEX [Suspect]
     Active Substance: DEXAMETHASONE
     Indication: Macular degeneration
     Dosage: TIME INTERVAL: AS NECESSARY: STRENGTH: 0.7MG INS?FREQUENCY TEXT: EVERY 4 -6 MONTHS
     Route: 031
     Dates: start: 20220810, end: 20220810

REACTIONS (3)
  - Visual impairment [Unknown]
  - Retinal disorder [Unknown]
  - Swelling [Unknown]

NARRATIVE: CASE EVENT DATE: 20240117
